FAERS Safety Report 10223300 (Version 1)
Quarter: 2014Q2

REPORT INFORMATION
  Report Type: Spontaneous
  Country: FR (occurrence: FR)
  Receive Date: 20140609
  Receipt Date: 20140609
  Transmission Date: 20141212
  Serious: Yes (Life-Threatening, Hospitalization)
  Sender: FDA-Public Use
  Company Number: FR-ROCHE-1413592

PATIENT
  Age: 99 Year
  Sex: Female

DRUGS (7)
  1. ROCEPHINE [Suspect]
     Indication: LUNG DISORDER
     Route: 065
     Dates: start: 201312
  2. FLAGYL [Suspect]
     Indication: PRODUCT USED FOR UNKNOWN INDICATION
     Route: 065
     Dates: start: 201312
  3. DIFFU K [Concomitant]
     Dosage: 600
     Route: 065
  4. PREVISCAN (FLUINDIONE) [Concomitant]
     Route: 065
  5. FUROSEMIDE [Concomitant]
     Route: 065
     Dates: end: 20140114
  6. FORLAX [Concomitant]
     Route: 065
     Dates: end: 20140114
  7. VITABACT [Concomitant]
     Route: 065
     Dates: start: 20131226

REACTIONS (3)
  - Clostridium difficile colitis [Recovered/Resolved]
  - Dehydration [Recovered/Resolved]
  - Circulatory collapse [Recovered/Resolved]
